FAERS Safety Report 16990435 (Version 1)
Quarter: 2019Q4

REPORT INFORMATION
  Report Type: Spontaneous
  Country: US (occurrence: US)
  Receive Date: 20191103
  Receipt Date: 20191103
  Transmission Date: 20200122
  Serious: No
  Sender: FDA-Public Use
  Company Number: None

PATIENT
  Age: 56 Year
  Sex: Female
  Weight: 72 kg

DRUGS (4)
  1. MAXIDE-HCTZ 37,5-25 MG TB [Concomitant]
  2. IBUPROFEN. [Concomitant]
     Active Substance: IBUPROFEN
  3. CYTOMEL 25 [Concomitant]
  4. LEVOTHYROXINE 100MCG [Suspect]
     Active Substance: LEVOTHYROXINE
     Indication: AUTOIMMUNE THYROIDITIS
     Dosage: ?          QUANTITY:1 TABLET(S);?
     Route: 048
     Dates: start: 20190701, end: 20191003

REACTIONS (8)
  - Palpitations [None]
  - Agitation [None]
  - Condition aggravated [None]
  - Autoimmune thyroiditis [None]
  - Headache [None]
  - Feeling abnormal [None]
  - Fatigue [None]
  - Product substitution issue [None]
